FAERS Safety Report 14997227 (Version 1)
Quarter: 2018Q2

REPORT INFORMATION
  Report Type: Spontaneous
  Country: GB (occurrence: GB)
  Receive Date: 20180611
  Receipt Date: 20180611
  Transmission Date: 20180711
  Serious: Yes (Disabling, Other)
  Sender: FDA-Public Use
  Company Number: GB-MYLANLABS-2018M1037789

PATIENT
  Age: 66 Year
  Sex: Male
  Weight: 63.5 kg

DRUGS (1)
  1. TAMSULOSIN [Suspect]
     Active Substance: TAMSULOSIN
     Indication: PROSTATOMEGALY
     Dosage: UNK
     Route: 048

REACTIONS (3)
  - Visual impairment [Not Recovered/Not Resolved]
  - Eye pain [Recovered/Resolved with Sequelae]
  - Macular fibrosis [Unknown]
